FAERS Safety Report 8456457-2 (Version None)
Quarter: 2012Q2

REPORT INFORMATION
  Report Type: 
  Country: None (occurrence: None)
  Receive Date: 20120621
  Receipt Date: 20120614
  Transmission Date: 20120825
  Serious: Yes (Hospitalization)
  Sender: FDA-Public Use
  Company Number: US-CELGENEUS-163-21880-12041716

PATIENT
  Sex: Male
  Weight: 131.66 kg

DRUGS (20)
  1. DIOVAN HCT [Concomitant]
     Dosage: 80-12.5MG
     Route: 048
  2. REVLIMID [Suspect]
     Indication: MULTIPLE MYELOMA
     Dosage: 25 MILLIGRAM
     Route: 048
     Dates: start: 20120410
  3. REVLIMID [Suspect]
     Dosage: 10 MILLIGRAM
     Route: 048
     Dates: start: 20120501
  4. REVLIMID [Suspect]
     Dosage: 25 MILLIGRAM
     Route: 048
     Dates: start: 20110701
  5. TESSALON [Concomitant]
     Dosage: 100 MILLIGRAM
     Route: 048
  6. TUSSIONEX SR [Concomitant]
     Indication: COUGH
     Dosage: 10-8MG/5ML
     Route: 048
  7. ZOFRAN [Concomitant]
     Dosage: 8 MILLIGRAM
     Route: 048
  8. FISH OIL CONCENTRATE [Concomitant]
     Dosage: 1000 MILLIGRAM
     Route: 048
  9. ASPIRIN [Concomitant]
     Dosage: 81 MILLIGRAM
     Route: 048
  10. GLUCOSAMINE CHONDROITIN [Concomitant]
     Dosage: 500-400MG
     Route: 048
  11. TRAMADOL HCL [Concomitant]
     Dosage: 50 MILLIGRAM
     Route: 048
  12. SOMA [Concomitant]
     Dosage: 350 MILLIGRAM
     Route: 048
  13. LOSARTAN POTASSIUM [Concomitant]
     Dosage: 50 MILLIGRAM
     Route: 065
  14. CIALIS [Concomitant]
     Dosage: 10 MILLIGRAM
     Route: 048
  15. NORCO [Concomitant]
     Indication: PAIN
     Dosage: 10-325MG
     Route: 048
  16. HYDROCHLOROTHIAZIDE [Concomitant]
     Dosage: 25 MILLIGRAM
     Route: 065
  17. CRESTOR [Concomitant]
     Dosage: 40 MILLIGRAM
     Route: 048
  18. AMBIEN [Concomitant]
     Indication: SLEEP DISORDER
     Dosage: 10 MILLIGRAM
     Route: 048
  19. VALIUM [Concomitant]
     Indication: ANXIETY
     Dosage: 5 MILLIGRAM
     Route: 048
  20. VITAMIN B COMPLEX CAP [Concomitant]
     Dosage: 1 CAPSULE
     Route: 048

REACTIONS (5)
  - ERYTHEMA MULTIFORME [None]
  - MALAISE [None]
  - TOXICITY TO VARIOUS AGENTS [None]
  - JOINT SWELLING [None]
  - BLISTER [None]
